FAERS Safety Report 11302853 (Version 3)
Quarter: 2015Q4

REPORT INFORMATION
  Report Type: Spontaneous
  Country: US (occurrence: US)
  Receive Date: 20150723
  Receipt Date: 20151202
  Transmission Date: 20160304
  Serious: Yes (Other)
  Sender: FDA-Public Use
  Company Number: US-SA-2015SA103759

PATIENT
  Age: 29 Year
  Sex: Male

DRUGS (2)
  1. ICY HOT MEDICATED NO MESS APPLICATOR [Suspect]
     Active Substance: MENTHOL
     Indication: BACK PAIN
     Dosage: DOSAGE FORM : ROLL ON STICK
     Route: 061
     Dates: start: 20150110, end: 20150704
  2. ICY HOT MEDICATED NO MESS APPLICATOR [Suspect]
     Active Substance: MENTHOL
     Indication: BACK PAIN
     Dosage: DOSAGE FORM : ROLL ON STICK
     Route: 061
     Dates: start: 20150110, end: 20150704

REACTIONS (4)
  - Pain [Recovered/Resolved]
  - Erythema [Recovered/Resolved]
  - Burns second degree [Unknown]
  - Burns first degree [Unknown]

NARRATIVE: CASE EVENT DATE: 20150704
